FAERS Safety Report 15765680 (Version 1)
Quarter: 2018Q4

REPORT INFORMATION
  Report Type: Spontaneous
  Country: US (occurrence: US)
  Receive Date: 20181207
  Receipt Date: 20181207
  Transmission Date: 20190205
  Serious: Yes (Hospitalization)
  Sender: FDA-Public Use
  Company Number: None

PATIENT
  Age: 69 Year
  Sex: Male

DRUGS (2)
  1. PREDNISONE. [Suspect]
     Active Substance: PREDNISONE
     Indication: LEUKAEMIA
     Route: 048
     Dates: start: 20181116, end: 20181130
  2. DASATINIB. [Suspect]
     Active Substance: DASATINIB
     Indication: LEUKAEMIA
     Dosage: ?          OTHER FREQUENCY:AM;?
     Route: 048
     Dates: start: 20181116

REACTIONS (9)
  - Pancytopenia [None]
  - Cardiac failure [None]
  - Packed red blood cell transfusion [None]
  - Treatment noncompliance [None]
  - Cough [None]
  - Platelet transfusion [None]
  - Hyperglycaemia [None]
  - Haemoptysis [None]
  - Cardiac failure acute [None]

NARRATIVE: CASE EVENT DATE: 20181122
